FAERS Safety Report 16180186 (Version 2)
Quarter: 2020Q2

REPORT INFORMATION
  Report Type: Spontaneous
  Country: US (occurrence: US)
  Receive Date: 20190410
  Receipt Date: 20200618
  Transmission Date: 20200713
  Serious: No
  Sender: FDA-Public Use
  Company Number: US-TEVA-2019-US-1034525

PATIENT
  Age: 88 Year
  Sex: Female

DRUGS (11)
  1. METAPRIN [Concomitant]
     Dosage: SUSPENSION
  2. TRAZODONE HYDROCHLORIDE TABLETS [Suspect]
     Active Substance: TRAZODONE HYDROCHLORIDE
     Route: 065
     Dates: start: 201906, end: 201906
  3. RAMIPRIL. [Concomitant]
     Active Substance: RAMIPRIL
  4. RALOXIFENE. [Concomitant]
     Active Substance: RALOXIFENE
  5. TRAZODONE HYDROCHLORIDE TABLETS [Suspect]
     Active Substance: TRAZODONE HYDROCHLORIDE
     Indication: DEPRESSION
     Route: 065
     Dates: start: 20190329
  6. CEFDINIR. [Concomitant]
     Active Substance: CEFDINIR
     Dosage: FORM OF ADMIN: SUSPENSION
  7. FAMOTIDINE. [Concomitant]
     Active Substance: FAMOTIDINE
  8. LEVOTHYROXINE. [Concomitant]
     Active Substance: LEVOTHYROXINE
  9. QUETIAPINE. [Concomitant]
     Active Substance: QUETIAPINE
  10. ATORVASTATIN [Concomitant]
     Active Substance: ATORVASTATIN
  11. DEXILANT [Concomitant]
     Active Substance: DEXLANSOPRAZOLE

REACTIONS (2)
  - Feeling abnormal [Not Recovered/Not Resolved]
  - Hypersomnia [Not Recovered/Not Resolved]

NARRATIVE: CASE EVENT DATE: 20190401
